FAERS Safety Report 4277713-8 (Version None)
Quarter: 2004Q1

REPORT INFORMATION
  Report Type: 
  Country: None (occurrence: None)
  Receive Date: 20040123
  Receipt Date: 20040119
  Transmission Date: 20041129
  Serious: Yes (Other)
  Sender: FDA-Public Use
  Company Number: PHBS2004NL01023

PATIENT
  Sex: Female

DRUGS (1)
  1. LAMISIL [Suspect]
     Indication: NAIL TINEA
     Route: 048
     Dates: start: 20030401, end: 20030601

REACTIONS (4)
  - BRAIN DAMAGE [None]
  - DIZZINESS [None]
  - ELECTROLYTE IMBALANCE [None]
  - THIRST [None]
